FAERS Safety Report 4976949-8 (Version None)
Quarter: 2006Q2

REPORT INFORMATION
  Report Type: 
  Country: None (occurrence: None)
  Receive Date: 20060412
  Receipt Date: 20060329
  Transmission Date: 20061013
  Serious: Yes (Other)
  Sender: FDA-Public Use
  Company Number: IMP_2173_2006

PATIENT
  Age: 40 Year
  Sex: Female

DRUGS (1)
  1. CLARITIN [Suspect]
     Dosage: 1 TAB Q12HR PO
     Route: 048
     Dates: start: 20060324, end: 20060326

REACTIONS (1)
  - RESPIRATORY DISORDER [None]
